FAERS Safety Report 9825315 (Version 1)
Quarter: 2014Q1

REPORT INFORMATION
  Report Type: Spontaneous
  Country: US (occurrence: None)
  Receive Date: 20140115
  Receipt Date: 20140115
  Transmission Date: 20141002
  Serious: Yes (Hospitalization)
  Sender: FDA-Public Use
  Company Number: None

PATIENT
  Age: 65 Year
  Sex: Male
  Weight: 81.65 kg

DRUGS (4)
  1. XARELTO, 20 MG, JANSSEN PHARM [Suspect]
     Indication: DEEP VEIN THROMBOSIS
     Dosage: 1 TABLET
     Route: 048
     Dates: start: 20130710, end: 20140105
  2. METOPROLOL SUCCINATE [Concomitant]
  3. METFORMIN [Concomitant]
  4. ALBUTEROL [Concomitant]

REACTIONS (1)
  - Acute myocardial infarction [None]
